FAERS Safety Report 4609367-2 (Version None)
Quarter: 2005Q2

REPORT INFORMATION
  Report Type: 
  Country: None (occurrence: None)
  Receive Date: 20050301
  Receipt Date: 20041119
  Transmission Date: 20051028
  Serious: No
  Sender: FDA-Public Use
  Company Number: WAES 0410USA03721

PATIENT
  Age: 74 Year
  Sex: Female

DRUGS (6)
  1. ZETIA [Suspect]
     Indication: LOW DENSITY LIPOPROTEIN INCREASED
     Dosage: 10 MG/DAILY/PO
     Route: 048
     Dates: start: 20040701, end: 20041018
  2. COUMADIN [Concomitant]
  3. LIPITOR [Concomitant]
  4. SYNTHROID [Concomitant]
  5. ASPIRIN [Concomitant]
  6. VITAMINS (UNSPECIFIED) [Concomitant]

REACTIONS (2)
  - RASH PRURITIC [None]
  - RHINORRHOEA [None]
